APPROVED DRUG PRODUCT: BREO ELLIPTA
Active Ingredient: FLUTICASONE FUROATE; VILANTEROL TRIFENATATE
Strength: 0.2MG/INH;EQ 0.025MG BASE/INH
Dosage Form/Route: POWDER;INHALATION
Application: N204275 | Product #002
Applicant: GLAXO GROUP LTD ENGLAND DBA GLAXOSMITHKLINE
Approved: Apr 30, 2015 | RLD: Yes | RS: Yes | Type: RX

PATENTS:
Patent 8511304 | Expires: Jun 14, 2027
Patent 11116721 | Expires: Feb 26, 2029
Patent 8511304 | Expires: Jun 14, 2027
Patent 11116721 | Expires: Feb 26, 2029
Patent 8534281 | Expires: Mar 8, 2030
Patent 8746242 | Expires: Oct 11, 2030
Patent 8746242*PED | Expires: Apr 11, 2031
Patent 8534281*PED | Expires: Sep 8, 2030
Patent 8511304*PED | Expires: Dec 14, 2027
Patent 11116721*PED | Expires: Aug 26, 2029